FAERS Safety Report 7790743 (Version 2)
Quarter: 2013Q1

REPORT INFORMATION
  Report Type: Report from Study
  Country: US (occurrence: US)
  Receive Date: 20110130
  Receipt Date: 20130131
  Transmission Date: 20140127
  Serious: No
  Sender: FDA-Public Use
  Company Number: US-ABBOTT-10P-163-0675531-00

PATIENT
  Sex: Male
  Weight: 124.4 kg

DRUGS (2)
  1. HUMIRA 40 MG/0.8 ML PEN [Suspect]
     Indication: CROHN^S DISEASE
     Dosage: 40MG/08.ML
     Route: 050
     Dates: start: 200911
  2. MORPHINE SULFATE [Concomitant]
     Indication: PAIN

REACTIONS (4)
  - Burning sensation [Recovered/Resolved]
  - Device malfunction [Unknown]
  - Incorrect dose administered [Unknown]
  - Injection site pain [Recovered/Resolved]
